FAERS Safety Report 11094208 (Version 1)
Quarter: 2015Q2

REPORT INFORMATION
  Report Type: Spontaneous
  Country: US (occurrence: US)
  Receive Date: 20150506
  Receipt Date: 20150506
  Transmission Date: 20150821
  Serious: No
  Sender: FDA-Public Use
  Company Number: US-PFIZER INC-2015143747

PATIENT
  Age: 63 Year
  Sex: Male
  Weight: 86 kg

DRUGS (1)
  1. ADVIL [Suspect]
     Active Substance: IBUPROFEN
     Indication: HEADACHE
     Dosage: 1 DF, AS NEEDED
     Route: 048
     Dates: start: 20150315

REACTIONS (2)
  - Poor quality drug administered [Unknown]
  - Product physical issue [Unknown]

NARRATIVE: CASE EVENT DATE: 201503
